FAERS Safety Report 6808956-4 (Version None)
Quarter: 2010Q2

REPORT INFORMATION
  Report Type: 
  Country: None (occurrence: None)
  Receive Date: 20100630
  Receipt Date: 20091101
  Transmission Date: 20101027
  Serious: No
  Sender: FDA-Public Use
  Company Number: US-PFIZER INC-2009235371

PATIENT
  Age: 60 Year
  Sex: Female

DRUGS (4)
  1. XANAX [Suspect]
     Indication: PAIN IN EXTREMITY
  2. TYLENOL (CAPLET) [Suspect]
     Indication: PAIN IN EXTREMITY
  3. LOVENOX [Suspect]
     Indication: MUSCLE SPASMS
  4. LOVENOX [Suspect]
     Indication: PAIN IN EXTREMITY

REACTIONS (1)
  - DRUG INEFFECTIVE [None]
